FAERS Safety Report 25642374 (Version 1)
Quarter: 2025Q3

REPORT INFORMATION
  Report Type: Spontaneous
  Country: US (occurrence: US)
  Receive Date: 20250805
  Receipt Date: 20250805
  Transmission Date: 20251020
  Serious: No
  Sender: SANOFI AVENTIS
  Company Number: US-SA-2025SA228088

PATIENT
  Sex: Female

DRUGS (5)
  1. DUPIXENT [Suspect]
     Active Substance: DUPILUMAB
     Indication: Neurodermatitis
     Dosage: 300 MG, QOW
     Route: 058
  2. LATANOPROST [Concomitant]
     Active Substance: LATANOPROST
  3. ESCITALOPRAM [Concomitant]
     Active Substance: ESCITALOPRAM OXALATE
  4. MIRTAZAPINE [Concomitant]
     Active Substance: MIRTAZAPINE
  5. CARBIDOPA [Concomitant]
     Active Substance: CARBIDOPA

REACTIONS (1)
  - Urticaria [Recovered/Resolved]
